FAERS Safety Report 8540777-7 (Version None)
Quarter: 2012Q3

REPORT INFORMATION
  Report Type: 
  Country: None (occurrence: None)
  Receive Date: 20120726
  Receipt Date: 20100603
  Transmission Date: 20120928
  Serious: Yes (Other)
  Sender: FDA-Public Use
  Company Number: CO-PFIZER INC-2012180202

PATIENT
  Age: 73 Year
  Sex: Female

DRUGS (4)
  1. ACETYLSALICYLIC ACID [Concomitant]
     Dosage: 100 MG, 1X/DAY
  2. ISOSORBIDE DINITRATE [Concomitant]
     Dosage: 10 MG, 2X/DAY
  3. LIPITOR [Suspect]
     Dosage: 10 MG EVERY 24 HOURS
  4. LOSARTAN [Concomitant]
     Dosage: 100 MG, 2X/DAY

REACTIONS (2)
  - OBESITY [None]
  - HYPERTENSIVE EMERGENCY [None]
